FAERS Safety Report 23711731 (Version 1)
Quarter: 2024Q2

REPORT INFORMATION
  Report Type: Spontaneous
  Country: US (occurrence: None)
  Receive Date: 20240404
  Receipt Date: 20240404
  Transmission Date: 20240715
  Serious: Yes (Other)
  Sender: FDA-Public Use
  Company Number: None

PATIENT
  Age: 54 Year
  Sex: Female

DRUGS (1)
  1. MEKINIST [Suspect]
     Active Substance: TRAMETINIB DIMETHYL SULFOXIDE
     Indication: Ovarian cancer
     Dosage: FREQUENCY : DAILY;?

REACTIONS (7)
  - Diarrhoea [None]
  - Scratch [None]
  - Dehydration [None]
  - Fall [None]
  - Tendon rupture [None]
  - Muscle rupture [None]
  - Abnormal dreams [None]
